FAERS Safety Report 5571855-2 (Version None)
Quarter: 2007Q4

REPORT INFORMATION
  Report Type: 
  Country: None (occurrence: None)
  Receive Date: 20071221
  Receipt Date: 20071217
  Transmission Date: 20080405
  Serious: Yes (Hospitalization)
  Sender: FDA-Public Use
  Company Number: BE-BRISTOL-MYERS SQUIBB COMPANY-13999636

PATIENT
  Age: 58 Year
  Sex: Female

DRUGS (4)
  1. CETUXIMAB [Suspect]
     Indication: COLORECTAL CANCER METASTATIC
     Dosage: MOST RECENT INFUSION WAS ON 22NOV07
     Route: 042
     Dates: start: 20071122, end: 20071122
  2. UFT [Suspect]
     Indication: COLORECTAL CANCER METASTATIC
     Dosage: MOST RECENT INFUSION WAS ON 24NOV07. 1 DOSAGE FORM =4 (UNITS NOT SPECIFIED).
     Route: 048
     Dates: start: 20071124, end: 20071124
  3. OXALIPLATIN [Suspect]
     Indication: COLORECTAL CANCER METASTATIC
     Dosage: MOST RECENT INFUSION WAS ON 22NOV07
     Route: 042
     Dates: start: 20071108
  4. FOLINIC ACID [Concomitant]
     Indication: COLORECTAL CANCER METASTATIC
     Route: 048
     Dates: start: 20071108

REACTIONS (5)
  - BACK PAIN [None]
  - FATIGUE [None]
  - HYPOAESTHESIA [None]
  - NAUSEA [None]
  - VOMITING [None]
